FAERS Safety Report 8896317 (Version 1)
Quarter: 2012Q4

REPORT INFORMATION
  Report Type: Spontaneous
  Country: US (occurrence: None)
  Receive Date: 20121106
  Receipt Date: 20121106
  Transmission Date: 20130627
  Serious: Yes (Life-Threatening, Hospitalization)
  Sender: FDA-Public Use
  Company Number: None

PATIENT
  Age: 66 Year
  Sex: Male
  Weight: 88 kg

DRUGS (1)
  1. MORPHINE [Suspect]
     Indication: PAIN
     Route: 048
     Dates: start: 20121028, end: 20121031

REACTIONS (10)
  - Respiratory failure [None]
  - Hypercapnia [None]
  - Apnoea [None]
  - Unresponsive to stimuli [None]
  - Somnolence [None]
  - Pulse pressure decreased [None]
  - Infection [None]
  - Aspiration [None]
  - Fluid overload [None]
  - Liver disorder [None]
